FAERS Safety Report 8082993-7 (Version None)
Quarter: 2012Q1

REPORT INFORMATION
  Report Type: 
  Country: None (occurrence: None)
  Receive Date: 20120127
  Receipt Date: 20110309
  Transmission Date: 20120608
  Serious: No
  Sender: FDA-Public Use
  Company Number: US-ABBOTT-11P-163-0710525-00

PATIENT
  Age: 30 Year
  Sex: Female

DRUGS (7)
  1. LAMICTAL [Concomitant]
     Indication: DEPRESSION
  2. TRAZODONE HCL [Concomitant]
     Indication: INSOMNIA
     Dosage: AT BEDTIME
  3. WELLBUTRIN [Concomitant]
     Indication: DEPRESSION
  4. EFFEXOR [Concomitant]
     Indication: DEPRESSION
  5. LIALDA [Concomitant]
     Indication: CROHN'S DISEASE
  6. HUMIRA [Suspect]
     Indication: CROHN'S DISEASE
     Dosage: LOADING DOSE
     Dates: start: 20110302
  7. NEXIUM [Concomitant]
     Indication: ABDOMINAL PAIN UPPER

REACTIONS (2)
  - INJECTION SITE PAIN [None]
  - FATIGUE [None]
